FAERS Safety Report 17038648 (Version 2)
Quarter: 2020Q1

REPORT INFORMATION
  Report Type: Spontaneous
  Country: FR (occurrence: FR)
  Receive Date: 20191115
  Receipt Date: 20200122
  Transmission Date: 20200409
  Serious: Yes (Death, Other)
  Sender: FDA-Public Use
  Company Number: FR-BAYER-2019-202315

PATIENT
  Age: 70 Year
  Sex: Male
  Weight: 78 kg

DRUGS (2)
  1. RIFAXIMIN. [Concomitant]
     Active Substance: RIFAXIMIN
  2. NEXAVAR [Suspect]
     Active Substance: SORAFENIB
     Dosage: 400 MG, QD (IN THE MORNING)
     Dates: start: 201805, end: 201908

REACTIONS (23)
  - Hepatic failure [Fatal]
  - Alpha 1 foetoprotein increased [None]
  - Headache [None]
  - Hepatic encephalopathy [None]
  - Ischaemic skin ulcer [None]
  - Hypertension [None]
  - Hepatocellular carcinoma [Fatal]
  - Accident [None]
  - Confusional state [None]
  - Ascites [Recovered/Resolved]
  - Asterixis [None]
  - Purpura [None]
  - Pain in extremity [None]
  - Peripheral arterial occlusive disease [None]
  - Psoriasis [None]
  - Hepatomegaly [None]
  - Pustular psoriasis [None]
  - Ecchymosis [None]
  - General physical health deterioration [Fatal]
  - Pain of skin [None]
  - Diarrhoea [None]
  - Spider naevus [None]
  - Umbilical hernia [None]

NARRATIVE: CASE EVENT DATE: 201806
